FAERS Safety Report 25219483 (Version 1)
Quarter: 2025Q2

REPORT INFORMATION
  Report Type: Spontaneous
  Country: JP (occurrence: JP)
  Receive Date: 20250421
  Receipt Date: 20250421
  Transmission Date: 20250717
  Serious: Yes (Death, Life-Threatening)
  Sender: NOVARTIS
  Company Number: JP-002147023-NVSJ2025JP004527

PATIENT
  Age: 15 Year
  Sex: Male
  Weight: 42.5 kg

DRUGS (1)
  1. KYMRIAH [Suspect]
     Active Substance: TISAGENLECLEUCEL
     Indication: Acute lymphocytic leukaemia recurrent
     Route: 041
     Dates: start: 20240425, end: 20240425

REACTIONS (2)
  - Transformation to acute myeloid leukaemia [Fatal]
  - Lineage switch leukaemia [Fatal]

NARRATIVE: CASE EVENT DATE: 20240709
